FAERS Safety Report 25864780 (Version 1)
Quarter: 2025Q3

REPORT INFORMATION
  Report Type: Spontaneous
  Country: EU (occurrence: EU)
  Receive Date: 20250930
  Receipt Date: 20250930
  Transmission Date: 20251020
  Serious: Yes (Hospitalization)
  Sender: MERCK SHARP & DOHME LLC
  Company Number: EU-009507513-2265184

PATIENT
  Age: 44 Year
  Sex: Female
  Weight: 86 kg

DRUGS (2)
  1. STEGLATRO [Suspect]
     Active Substance: ERTUGLIFLOZIN PIDOLATE
     Indication: Type 2 diabetes mellitus
     Route: 048
     Dates: start: 202309, end: 202502
  2. METFORMIN HYDROCHLORIDE [Concomitant]
     Active Substance: METFORMIN HYDROCHLORIDE
     Indication: Type 2 diabetes mellitus
     Route: 048
     Dates: end: 202502

REACTIONS (3)
  - Diabetes mellitus inadequate control [Unknown]
  - Maternal exposure during pregnancy [Unknown]
  - Foetal macrosomia [Unknown]

NARRATIVE: CASE EVENT DATE: 20250508
